FAERS Safety Report 19038753 (Version 3)
Quarter: 2021Q3

REPORT INFORMATION
  Report Type: Spontaneous
  Country: IN (occurrence: IN)
  Receive Date: 20210322
  Receipt Date: 20210730
  Transmission Date: 20211014
  Serious: Yes (Other)
  Sender: FDA-Public Use
  Company Number: IN-PFIZER INC-2021259830

PATIENT
  Age: 65 Year
  Sex: Female

DRUGS (2)
  1. PALBACE [Suspect]
     Active Substance: PALBOCICLIB
     Indication: BREAST CANCER METASTATIC
     Dosage: 125 MG, 1X/DAY
     Route: 048
     Dates: start: 20200113
  2. FULVESTRANT. [Concomitant]
     Active Substance: FULVESTRANT
     Dosage: 500 MG (28 DAYS)

REACTIONS (6)
  - Diabetes mellitus [Unknown]
  - Hyperthyroidism [Unknown]
  - Blood pressure abnormal [Unknown]
  - Hypertension [Unknown]
  - Hypothyroidism [Unknown]
  - Neoplasm progression [Unknown]
